FAERS Safety Report 12772777 (Version 1)
Quarter: 2016Q3

REPORT INFORMATION
  Report Type: Spontaneous
  Country: US (occurrence: US)
  Receive Date: 20160922
  Receipt Date: 20160922
  Transmission Date: 20161109
  Serious: Yes (Death)
  Sender: FDA-Public Use
  Company Number: US-ELI_LILLY_AND_COMPANY-US201609006621

PATIENT
  Age: 66 Year
  Sex: Male

DRUGS (1)
  1. TRULICITY [Suspect]
     Active Substance: DULAGLUTIDE
     Indication: WEIGHT DECREASED
     Dosage: UNK, UNKNOWN
     Route: 065

REACTIONS (9)
  - Renal disorder [Unknown]
  - Off label use [Unknown]
  - Weight increased [Unknown]
  - Blood potassium increased [Unknown]
  - Anxiety [Unknown]
  - Gastrointestinal disorder [Unknown]
  - Headache [Unknown]
  - Abdominal distension [Unknown]
  - Death [Fatal]

NARRATIVE: CASE EVENT DATE: 20160814
